FAERS Safety Report 6198732-0 (Version None)
Quarter: 2009Q2

REPORT INFORMATION
  Report Type: 
  Country: None (occurrence: None)
  Receive Date: 20090521
  Receipt Date: 20090507
  Transmission Date: 20091009
  Serious: Yes (Other)
  Sender: FDA-Public Use
  Company Number: FR-GENENTECH-283407

PATIENT
  Sex: Female

DRUGS (1)
  1. XOLAIR [Suspect]
     Indication: ASTHMA
     Dosage: 300 MG, 2/WEEK

REACTIONS (6)
  - ANXIETY [None]
  - ASTHENIA [None]
  - DYSPNOEA [None]
  - FACIAL PALSY [None]
  - MUSCLE SPASMS [None]
  - VOMITING [None]
